FAERS Safety Report 4287592-0 (Version None)
Quarter: 2004Q1

REPORT INFORMATION
  Report Type: 
  Country: None (occurrence: None)
  Receive Date: 20040205
  Receipt Date: 20040121
  Transmission Date: 20041129
  Serious: Yes (Hospitalization)
  Sender: FDA-Public Use
  Company Number: 2004US001990

PATIENT
  Age: 53 Year
  Sex: Female
  Weight: 57.1 kg

DRUGS (7)
  1. PALONOSETRON (PALONOSETRON HYDROCHLORIDE) INJECTION, 0.25MG/5ML [Suspect]
     Indication: ANTIEMETIC SUPPORTIVE CARE
     Dosage: 0.25 MG, SINGLE, ORAL
     Route: 048
     Dates: start: 20040106, end: 20040106
  2. EMEND [Suspect]
     Indication: ANTIEMETIC SUPPORTIVE CARE
     Dosage: SEE IMAGE
     Route: 048
     Dates: start: 20040106, end: 20040106
  3. EMEND [Suspect]
     Indication: ANTIEMETIC SUPPORTIVE CARE
     Dosage: SEE IMAGE
     Route: 048
     Dates: start: 20040107, end: 20040107
  4. DEXAMETHASONE [Suspect]
     Indication: ANTIEMETIC SUPPORTIVE CARE
     Dosage: SEE IMAGE
     Route: 048
     Dates: start: 20040106, end: 20040106
  5. DEXAMETHASONE [Suspect]
     Indication: ANTIEMETIC SUPPORTIVE CARE
     Dosage: SEE IMAGE
     Route: 048
     Dates: start: 20040107, end: 20040107
  6. DOXORUBICIN (DOXORUBICIN) [Concomitant]
  7. CYCLOPHOSPHAMIDE (CYCLOPHOSPHAMIDE) [Concomitant]

REACTIONS (9)
  - ATRIOVENTRICULAR BLOCK FIRST DEGREE [None]
  - BLOOD BICARBONATE INCREASED [None]
  - BLOOD CREATININE DECREASED [None]
  - BLOOD GLUCOSE INCREASED [None]
  - CALCINOSIS [None]
  - CONVULSION [None]
  - ELECTROENCEPHALOGRAM ABNORMAL [None]
  - HAEMATOCRIT DECREASED [None]
  - SINUS DISORDER [None]
